FAERS Safety Report 13726407 (Version 4)
Quarter: 2017Q4

REPORT INFORMATION
  Report Type: Spontaneous
  Country: US (occurrence: US)
  Receive Date: 20170706
  Receipt Date: 20171006
  Transmission Date: 20180320
  Serious: No
  Sender: FDA-Public Use
  Company Number: US-PFIZER INC-2017290655

PATIENT
  Age: 69 Year
  Sex: Female

DRUGS (1)
  1. LYRICA [Suspect]
     Active Substance: PREGABALIN
     Indication: NEUROMYOPATHY
     Dosage: 50 MG, 3X
     Dates: start: 201603, end: 2016

REACTIONS (7)
  - Drug ineffective for unapproved indication [Unknown]
  - Eating disorder [Not Recovered/Not Resolved]
  - Withdrawal syndrome [Unknown]
  - Nightmare [Unknown]
  - Vision blurred [Recovering/Resolving]
  - Aptyalism [Not Recovered/Not Resolved]
  - Weight increased [Not Recovered/Not Resolved]

NARRATIVE: CASE EVENT DATE: 2016
